FAERS Safety Report 15755555 (Version 2)
Quarter: 2019Q1

REPORT INFORMATION
  Report Type: Spontaneous
  Country: PT (occurrence: PT)
  Receive Date: 20181224
  Receipt Date: 20190223
  Transmission Date: 20190417
  Serious: Yes (Other)
  Sender: FDA-Public Use
  Company Number: PT-ACCORD-096724

PATIENT
  Age: 65 Year
  Sex: Female

DRUGS (1)
  1. SIMVASTATIN. [Suspect]
     Active Substance: SIMVASTATIN
     Indication: HYPERCHOLESTEROLAEMIA

REACTIONS (1)
  - Lichenoid keratosis [Recovered/Resolved]
